FAERS Safety Report 21649803 (Version 1)
Quarter: 2022Q4

REPORT INFORMATION
  Report Type: Report from Study
  Country: IT (occurrence: IT)
  Receive Date: 20221128
  Receipt Date: 20221128
  Transmission Date: 20230112
  Serious: Yes (Hospitalization, Other)
  Sender: FDA-Public Use
  Company Number: None

PATIENT
  Age: 6 Year
  Sex: Female
  Weight: 19 kg

DRUGS (8)
  1. METHOTREXATE (METHOTREXATE SODIUM) [Suspect]
     Active Substance: METHOTREXATE SODIUM
     Indication: Acute lymphocytic leukaemia
     Dosage: 12 MG/DAY ON 10, 08/31, 14,28/09/22 , DURATION : 49 DAYS
     Dates: start: 20220810, end: 20220928
  2. VINCRISTINE [Suspect]
     Active Substance: VINCRISTINE
     Indication: Acute lymphocytic leukaemia
     Dosage: 1.16 MG/DAY ON 03,10,17,25/08/22 , DURATION : 22 DAYS
     Dates: start: 20220803, end: 20220825
  3. PURINETHOL [Suspect]
     Active Substance: MERCAPTOPURINE
     Indication: Acute lymphocytic leukaemia
     Dosage: 50 MG/DAY ALTERNATING WITH 37.5 MG/DAY FROM 03/09 TO 10/10/22, DURATION : 37 DAYS
     Dates: start: 20220903, end: 20221010
  4. CYTARABINE [Suspect]
     Active Substance: CYTARABINE
     Indication: Acute lymphocytic leukaemia
     Dosage: 58 MG/DAY FROM DAY 05 TO DAY 08/09/22 , 58 MG/DAY FROM DAY 12 TO DAY 9/15/22 ,58 MG/DAY FROM DAY 21
     Dates: start: 20220905, end: 20220929
  5. ONCASPAR [Suspect]
     Active Substance: PEGASPARGASE
     Indication: Acute lymphocytic leukaemia
     Dosage: 1940 U/I DATED 08.22/08/22 , DURATION : 14 DAYS
     Dates: start: 20220808, end: 20220822
  6. CYCLOPHOSPHAMIDE [Suspect]
     Active Substance: CYCLOPHOSPHAMIDE
     Indication: Acute lymphocytic leukaemia
     Dosage: 775 MG/DAY ON 9/19 AND 10/17/22 , DURATION : 28 DAYS
     Dates: start: 20220919, end: 20221017
  7. DAUNORUBICIN HYDROCHLORIDE [Suspect]
     Active Substance: DAUNORUBICIN HYDROCHLORIDE
     Indication: Acute lymphocytic leukaemia
     Dosage: 23 MG/DAY ON 03,10,17,25/08/22 , DURATION : 22 DAYS
     Dates: start: 20220803, end: 20220825
  8. PREDNISONE [Concomitant]
     Active Substance: PREDNISONE
     Indication: Acute lymphocytic leukaemia
     Dosage: 45 MG/DAY FROM DAY 27 TO DAY 7/28/22 , 47.5 MG/DAY FROM 07/29 TO 08/18/22  ,23.7 FROM DAY 19/08 TO D
     Dates: start: 20220727, end: 20220827

REACTIONS (5)
  - Drug-induced liver injury [Recovered/Resolved]
  - Pancytopenia [Recovering/Resolving]
  - Febrile neutropenia [Recovered/Resolved]
  - Hyperglycaemia [Recovered/Resolved]
  - Anaemia [Not Recovered/Not Resolved]

NARRATIVE: CASE EVENT DATE: 20220805
